FAERS Safety Report 20046041 (Version 1)
Quarter: 2021Q4

REPORT INFORMATION
  Report Type: Spontaneous
  Country: US (occurrence: None)
  Receive Date: 20211108
  Receipt Date: 20211108
  Transmission Date: 20220303
  Serious: Yes (Other)
  Sender: FDA-Public Use
  Company Number: None

PATIENT
  Age: 74 Year
  Sex: Male
  Weight: 76.5 kg

DRUGS (1)
  1. CLINDAMYCIN [Suspect]
     Active Substance: CLINDAMYCIN
     Indication: Antibiotic prophylaxis
     Dosage: FREQUENCY : EVERY 8 HOURS;?
     Route: 048
     Dates: start: 20211019, end: 20211021

REACTIONS (6)
  - Rash pruritic [None]
  - Swelling [None]
  - Skin discolouration [None]
  - Hyperaesthesia [None]
  - Bruxism [None]
  - Skin exfoliation [None]

NARRATIVE: CASE EVENT DATE: 20211024
